FAERS Safety Report 22267238 (Version 1)
Quarter: 2023Q2

REPORT INFORMATION
  Report Type: Spontaneous
  Country: US (occurrence: US)
  Receive Date: 20230428
  Receipt Date: 20230428
  Transmission Date: 20230721
  Serious: Yes (Death)
  Sender: FDA-Public Use
  Company Number: US-SHIONOGI, INC-2023001011

PATIENT
  Age: 61 Year
  Sex: Male

DRUGS (9)
  1. FETROJA [Suspect]
     Active Substance: CEFIDEROCOL SULFATE TOSYLATE
     Indication: Acinetobacter infection
     Dosage: 1.5 G, 8 HOUR
     Route: 042
  2. FETROJA [Suspect]
     Active Substance: CEFIDEROCOL SULFATE TOSYLATE
     Indication: Pneumonia
  3. FETROJA [Suspect]
     Active Substance: CEFIDEROCOL SULFATE TOSYLATE
     Indication: Haematological infection
  4. MINOCYCLINE [Suspect]
     Active Substance: MINOCYCLINE HYDROCHLORIDE
     Indication: Acinetobacter infection
     Route: 065
  5. MINOCYCLINE [Suspect]
     Active Substance: MINOCYCLINE HYDROCHLORIDE
     Indication: Pneumonia
  6. MINOCYCLINE [Suspect]
     Active Substance: MINOCYCLINE HYDROCHLORIDE
     Indication: Haematological infection
  7. CEFEPIME [Concomitant]
     Active Substance: CEFEPIME HYDROCHLORIDE
     Indication: Acinetobacter infection
     Route: 065
  8. CEFEPIME [Concomitant]
     Active Substance: CEFEPIME HYDROCHLORIDE
     Indication: Pneumonia
  9. CEFEPIME [Concomitant]
     Active Substance: CEFEPIME HYDROCHLORIDE
     Indication: Haematological infection

REACTIONS (1)
  - Death [Fatal]
